FAERS Safety Report 17010773 (Version 1)
Quarter: 2019Q4

REPORT INFORMATION
  Report Type: Spontaneous
  Country: US (occurrence: US)
  Receive Date: 20191108
  Receipt Date: 20191108
  Transmission Date: 20200122
  Serious: No
  Sender: FDA-Public Use
  Company Number: US-SA-2019SA304507

PATIENT
  Sex: Female

DRUGS (3)
  1. NUCALA [Concomitant]
     Active Substance: MEPOLIZUMAB
  2. FASENRA [Concomitant]
     Active Substance: BENRALIZUMAB
  3. DUPIXENT [Suspect]
     Active Substance: DUPILUMAB
     Indication: ASTHMA

REACTIONS (3)
  - Drug intolerance [Unknown]
  - Arthralgia [Recovered/Resolved]
  - Neuralgia [Recovered/Resolved]
